FAERS Safety Report 9246188 (Version 2)
Quarter: 2013Q2

REPORT INFORMATION
  Report Type: Spontaneous
  Country: US (occurrence: US)
  Receive Date: 20130422
  Receipt Date: 20130620
  Transmission Date: 20140414
  Serious: Yes (Hospitalization)
  Sender: FDA-Public Use
  Company Number: US-009507513-2009SP023393

PATIENT
  Sex: Female
  Weight: 72.58 kg

DRUGS (6)
  1. NUVARING [Suspect]
     Indication: CONTRACEPTION
     Dates: start: 200306, end: 20031014
  2. NUVARING [Suspect]
     Indication: OVARIAN CYST
  3. PAXIL [Concomitant]
     Indication: BIPOLAR DISORDER
     Dosage: 20 MG, QD
  4. LITHIUM CARBONATE [Concomitant]
     Indication: BIPOLAR DISORDER
     Dosage: 300 MG, BID
  5. MINOCYCLINE [Concomitant]
     Indication: ACNE
     Dosage: 100 MG, BID
  6. ALLEGRA [Concomitant]
     Indication: HYPERSENSITIVITY
     Dosage: 180 MG, QD

REACTIONS (22)
  - Deep vein thrombosis [Unknown]
  - Dyslipidaemia [Unknown]
  - Back pain [Unknown]
  - Depression [Unknown]
  - Laparoscopy [Unknown]
  - Chronic obstructive pulmonary disease [Unknown]
  - Deep vein thrombosis [Unknown]
  - Oropharyngeal candidiasis [Unknown]
  - Oropharyngeal candidiasis [Not Recovered/Not Resolved]
  - Phlebitis superficial [Unknown]
  - Deep vein thrombosis [Unknown]
  - Deep vein thrombosis [Unknown]
  - Thrombosis [Unknown]
  - Thrombophlebitis superficial [Unknown]
  - Deep vein thrombosis [Unknown]
  - Adnexa uteri mass [Unknown]
  - Maternal exposure before pregnancy [Recovered/Resolved]
  - Fatigue [Unknown]
  - Hot flush [Unknown]
  - Nausea [Unknown]
  - Paraesthesia [Unknown]
  - Headache [Unknown]
